FAERS Safety Report 16362718 (Version 1)
Quarter: 2019Q2

REPORT INFORMATION
  Report Type: Spontaneous
  Country: US (occurrence: US)
  Receive Date: 20190528
  Receipt Date: 20190528
  Transmission Date: 20190711
  Serious: Yes (Other)
  Sender: FDA-Public Use
  Company Number: US-FRESENIUS KABI-FK201905904

PATIENT
  Age: 56 Year
  Sex: Male

DRUGS (5)
  1. HYDROMORPHONE HCL [Suspect]
     Active Substance: HYDROMORPHONE HYDROCHLORIDE
     Indication: PROCEDURAL PAIN
     Dosage: PATIENT CONTROLLED ANALGESIA
     Route: 042
  2. KETOROLAC [Concomitant]
     Active Substance: KETOROLAC\KETOROLAC TROMETHAMINE
     Indication: PAIN
     Dosage: PRN
     Route: 042
  3. OXYCODONE [Suspect]
     Active Substance: OXYCODONE
     Indication: PAIN MANAGEMENT
     Dosage: PRN
     Route: 048
  4. METHYLNALTREXONE [Suspect]
     Active Substance: METHYLNALTREXONE
     Indication: CONSTIPATION
     Route: 058
  5. METHADONE [Suspect]
     Active Substance: METHADONE HYDROCHLORIDE
     Indication: PROCEDURAL PAIN
     Route: 048

REACTIONS (3)
  - Constipation [Unknown]
  - Intestinal pseudo-obstruction [Unknown]
  - Intestinal perforation [Unknown]
